FAERS Safety Report 24621788 (Version 2)
Quarter: 2025Q2

REPORT INFORMATION
  Report Type: Spontaneous
  Country: US (occurrence: US)
  Receive Date: 20241114
  Receipt Date: 20250513
  Transmission Date: 20250717
  Serious: No
  Sender: SANOFI AVENTIS
  Company Number: US-SA-2024SA328159

PATIENT
  Age: 43 Year
  Sex: Female

DRUGS (1)
  1. DUPIXENT [Suspect]
     Active Substance: DUPILUMAB
     Indication: Dermatitis atopic
     Dosage: 300 MG, QOW
     Route: 058

REACTIONS (8)
  - Skin fissures [Unknown]
  - Dry skin [Unknown]
  - Vision blurred [Unknown]
  - Pruritus [Unknown]
  - Therapeutic response decreased [Unknown]
  - Injection site pain [Unknown]
  - Rash [Unknown]
  - Product dose omission in error [Unknown]
